FAERS Safety Report 8855090 (Version 1)
Quarter: 2012Q4

REPORT INFORMATION
  Report Type: 
  Country: US (occurrence: US)
  Receive Date: 20121023
  Receipt Date: 20121023
  Transmission Date: 20130627
  Serious: Yes (Hospitalization, Other)
  Sender: FDA-Public Use
  Company Number: US-TEVA-365151USA

PATIENT
  Age: 61 Year
  Sex: Female

DRUGS (1)
  1. COPAXONE [Suspect]
     Indication: MULTIPLE SCLEROSIS
     Dates: start: 20050328

REACTIONS (4)
  - Thyroid disorder [Not Recovered/Not Resolved]
  - Palpitations [Unknown]
  - Blood pressure increased [Unknown]
  - Headache [Unknown]
